FAERS Safety Report 10061229 (Version 2)
Quarter: 2014Q2

REPORT INFORMATION
  Report Type: Spontaneous
  Country: US (occurrence: US)
  Receive Date: 20140407
  Receipt Date: 20140423
  Transmission Date: 20141212
  Serious: Yes (Hospitalization)
  Sender: FDA-Public Use
  Company Number: US-BEH-2014041436

PATIENT
  Age: 54 Year
  Sex: Male
  Weight: 84 kg

DRUGS (5)
  1. PRIVIGEN [Suspect]
     Dosage: ??-FEB-2012
  2. PRIVIGEN [Suspect]
     Dates: start: 20130109
  3. PRIVIGEN [Suspect]
     Dates: start: 20130901
  4. PRIVIGEN [Suspect]
     Dosage: 20 GM 200 ML;1 GM/KG X 2 DAYS
     Route: 042
     Dates: start: 20140319, end: 20140319
  5. PRIVIGEN [Suspect]
     Indication: CHRONIC INFLAMMATORY DEMYELINATING POLYRADICULONEUROPATHY
     Dosage: 1 GM/KG X 2 DAYS; 30 ML/HR; RECEIVED 25 MIN. OF 85 GM DOSE
     Route: 042
     Dates: start: 20140320, end: 20140320

REACTIONS (7)
  - Oxygen saturation decreased [Recovered/Resolved]
  - Cyanosis [Recovered/Resolved]
  - Respiratory rate increased [Recovered/Resolved]
  - Blood pressure increased [Recovered/Resolved]
  - Feeling cold [Recovered/Resolved]
  - Tremor [Recovered/Resolved]
  - Anaphylactic reaction [Recovered/Resolved]
